FAERS Safety Report 8106141-X (Version None)
Quarter: 2012Q1

REPORT INFORMATION
  Report Type: 
  Country: None (occurrence: None)
  Receive Date: 20120130
  Receipt Date: 20120116
  Transmission Date: 20120608
  Serious: Yes (Death)
  Sender: FDA-Public Use
  Company Number: 2012POI058000037

PATIENT
  Age: 55 Year
  Sex: Female

DRUGS (13)
  1. CIMETIDINE [Suspect]
     Dosage: PER ORAL
     Route: 048
     Dates: end: 20100101
  2. EZETIMIBE/SIMVASTATIN [Suspect]
     Dosage: PER ORAL
     Route: 048
     Dates: end: 20100101
  3. MORPHINE [Suspect]
     Dosage: PER ORAL
     Route: 048
     Dates: end: 20100101
  4. HYDROCODONE BITARTRATE [Suspect]
     Dosage: PER ORAL
     Route: 048
  5. COCAINE [Suspect]
     Dosage: PER ORAL
     Route: 048
     Dates: end: 20100101
  6. GABAPENTIN [Suspect]
     Dosage: PER ORAL
     Route: 048
     Dates: end: 20100101
  7. PRAVASTATIN [Suspect]
     Dosage: PER ORAL
     Dates: end: 20100101
  8. OXYCODONE HYDROCHLORIDE [Suspect]
     Dosage: PER ORAL
     Route: 048
     Dates: end: 20100101
  9. LISINOPRIL [Suspect]
     Dosage: PER ORAL
     Route: 048
     Dates: end: 20100101
  10. NAPROXEN [Suspect]
     Dosage: PER ORAL
     Route: 048
     Dates: end: 20100101
  11. MONTELUKAST [Suspect]
     Dosage: PER ORAL
     Route: 048
     Dates: end: 20100101
  12. CYCLOBENZAPRINE [Suspect]
     Dosage: PER ORAL
     Route: 048
     Dates: end: 20100101
  13. ALPRAZOLAM [Suspect]
     Dosage: PER ORAL
     Route: 048
     Dates: end: 20100101

REACTIONS (1)
  - DEATH [None]
